FAERS Safety Report 11144421 (Version 3)
Quarter: 2015Q2

REPORT INFORMATION
  Report Type: Spontaneous
  Country: AU (occurrence: AU)
  Receive Date: 20150528
  Receipt Date: 20150612
  Transmission Date: 20150821
  Serious: Yes (Other)
  Sender: FDA-Public Use
  Company Number: AU-AMGEN-AUSSP2015050796

PATIENT
  Age: 70 Year
  Sex: Female
  Weight: 79 kg

DRUGS (2)
  1. PROLIA [Suspect]
     Active Substance: DENOSUMAB
     Indication: OSTEOPOROSIS
     Dosage: 60 MG, Q6MO
     Route: 065
  2. CALCIUM + VITAMIN D                /01483701/ [Concomitant]
     Active Substance: CALCIUM\VITAMIN D

REACTIONS (6)
  - Intervertebral disc space narrowing [Unknown]
  - Intervertebral disc calcification [Unknown]
  - Intervertebral disc degeneration [Unknown]
  - Body height decreased [Unknown]
  - Overweight [Unknown]
  - Osteopenia [Unknown]
